FAERS Safety Report 6137885-7 (Version None)
Quarter: 2009Q1

REPORT INFORMATION
  Report Type: 
  Country: None (occurrence: None)
  Receive Date: 20090326
  Receipt Date: 20090311
  Transmission Date: 20090719
  Serious: Yes (Other)
  Sender: FDA-Public Use
  Company Number: 2009S1004324

PATIENT
  Age: 61 Year
  Sex: Female
  Weight: 96 kg

DRUGS (4)
  1. DOXAZOSIN MESYLATE [Suspect]
     Indication: HYPERTENSION
     Dosage: 1 MG; DAILY; ORAL
     Route: 048
     Dates: start: 20090114, end: 20090127
  2. ATENOLOL [Concomitant]
  3. PERINDOPRIL ERBUMINE [Concomitant]
  4. DILTIAZEM HCL [Concomitant]

REACTIONS (5)
  - ABDOMINAL DISTENSION [None]
  - DYSPNOEA [None]
  - PAIN IN EXTREMITY [None]
  - RENAL IMPAIRMENT [None]
  - RHINITIS [None]
